FAERS Safety Report 10184594 (Version 4)
Quarter: 2014Q2

REPORT INFORMATION
  Report Type: Report from Study
  Country: CI (occurrence: CI)
  Receive Date: 20140521
  Receipt Date: 20140612
  Transmission Date: 20141212
  Serious: Yes (Death)
  Sender: FDA-Public Use
  Company Number: CI-BRISTOL-MYERS SQUIBB COMPANY-20777256

PATIENT
  Sex: Male

DRUGS (3)
  1. EFAVIRENZ CAPS [Suspect]
     Dosage: ONG
     Route: 064
     Dates: start: 20120612
  2. EMTRIVA [Suspect]
     Dosage: ONG
     Route: 064
     Dates: start: 20120612
  3. VIREAD [Suspect]
     Dosage: ONG
     Route: 064
     Dates: start: 20120612

REACTIONS (2)
  - Stillbirth [Fatal]
  - Foetal exposure during pregnancy [Unknown]
